FAERS Safety Report 16122513 (Version 3)
Quarter: 2019Q2

REPORT INFORMATION
  Report Type: Report from Study
  Country: US (occurrence: US)
  Receive Date: 20190327
  Receipt Date: 20190411
  Transmission Date: 20190711
  Serious: Yes (Hospitalization)
  Sender: FDA-Public Use
  Company Number: PHEH2019US012995

PATIENT
  Sex: Male

DRUGS (1)
  1. ENTRESTO [Suspect]
     Active Substance: SACUBITRIL\VALSARTAN
     Indication: PRODUCT USED FOR UNKNOWN INDICATION
     Dosage: 1.5 DF (49 MG SACUBITRIL AND 51 MG VALSARTAN), BID (HALF IN THE MORNING, 1 IN THE EVENNING )
     Route: 048

REACTIONS (4)
  - Malaise [Unknown]
  - Wrong technique in product usage process [Unknown]
  - Cardiac failure congestive [Unknown]
  - Product prescribing error [Unknown]
